FAERS Safety Report 7934939-7 (Version None)
Quarter: 2011Q4

REPORT INFORMATION
  Report Type: 
  Country: None (occurrence: None)
  Receive Date: 20111122
  Receipt Date: 20111115
  Transmission Date: 20120403
  Serious: Yes (Other)
  Sender: FDA-Public Use
  Company Number: US-ABBOTT-11P-163-0875379-00

PATIENT
  Age: 54 Year
  Sex: Female

DRUGS (5)
  1. ASACOL [Suspect]
     Indication: PRODUCT USED FOR UNKNOWN INDICATION
  2. HUMIRA [Suspect]
     Indication: PSORIATIC ARTHROPATHY
     Dates: start: 20100501
  3. PRAVACHOL [Concomitant]
     Indication: BLOOD CHOLESTEROL INCREASED
  4. VITAMIN TAB [Concomitant]
     Indication: PRODUCT USED FOR UNKNOWN INDICATION
  5. COLAZAL [Concomitant]
     Indication: COLITIS ULCERATIVE

REACTIONS (3)
  - DRUG EFFECT DECREASED [None]
  - HEPATITIS [None]
  - INJECTION SITE PAIN [None]
